FAERS Safety Report 13581452 (Version 1)
Quarter: 2017Q2

REPORT INFORMATION
  Report Type: Spontaneous
  Country: ES (occurrence: ES)
  Receive Date: 20170525
  Receipt Date: 20170525
  Transmission Date: 20170830
  Serious: Yes (Hospitalization)
  Sender: FDA-Public Use
  Company Number: ES-GLAXOSMITHKLINE-ES2017GSK079019

PATIENT
  Age: 36 Year
  Sex: Female

DRUGS (3)
  1. LABILENO [Suspect]
     Active Substance: LAMOTRIGINE
     Indication: SEIZURE
     Dosage: 100 MG, TID, 56 TABLETS
     Route: 048
     Dates: start: 1997
  2. LYRICA [Concomitant]
     Active Substance: PREGABALIN
     Indication: MIGRAINE
     Dosage: 150 MG, BID,100 CAPSULES
     Route: 048
     Dates: start: 20121210, end: 201702
  3. LABILENO [Suspect]
     Active Substance: LAMOTRIGINE
     Indication: HEADACHE

REACTIONS (3)
  - Exposure during pregnancy [Unknown]
  - Congenital anomaly in offspring [None]
  - Abortion induced [Unknown]

NARRATIVE: CASE EVENT DATE: 20170505
